FAERS Safety Report 5933241-2 (Version None)
Quarter: 2008Q4

REPORT INFORMATION
  Report Type: 
  Country: None (occurrence: None)
  Receive Date: 20081024
  Receipt Date: 20060817
  Transmission Date: 20090506
  Serious: Yes (Hospitalization, Other)
  Sender: FDA-Public Use
  Company Number: 2006AL002518

PATIENT
  Age: 87 Year
  Sex: Male

DRUGS (12)
  1. DICLOFENAC SODIUM [Suspect]
     Indication: PAIN
     Dosage: 75 MG; QD; PO
     Route: 048
     Dates: end: 20060627
  2. AMITRIPTYLINE HCL [Concomitant]
  3. ACETAMINOPHEN W/ CODEINE [Concomitant]
  4. DOMPERIDONE [Concomitant]
  5. FRUSEMIDE [Concomitant]
  6. OMEPRAZOLE [Concomitant]
  7. NITROGLYCERIN [Concomitant]
  8. TOLTERODINE [Concomitant]
  9. HALOPERIDOL [Concomitant]
  10. GAVISCON [Concomitant]
  11. FERROUS SULFATE [Concomitant]
  12. ASPIRIN W/DIPYRIDAMOLE [Concomitant]

REACTIONS (3)
  - GASTROINTESTINAL HAEMORRHAGE [None]
  - HAEMATEMESIS [None]
  - HAEMOGLOBIN DECREASED [None]
